FAERS Safety Report 17845262 (Version 1)
Quarter: 2020Q2

REPORT INFORMATION
  Report Type: Spontaneous
  Country: CA (occurrence: CA)
  Receive Date: 20200601
  Receipt Date: 20200601
  Transmission Date: 20200714
  Serious: Yes (Hospitalization)
  Sender: FDA-Public Use
  Company Number: CA-ROCHE-2606351

PATIENT
  Age: 96 Year
  Sex: Female

DRUGS (1)
  1. ACTEMRA [Suspect]
     Active Substance: TOCILIZUMAB
     Indication: TEMPORAL ARTERITIS
     Dosage: THERAPY DURATION: 40.0 DAYS
     Route: 058

REACTIONS (6)
  - Repetitive speech [Recovered/Resolved]
  - Speech disorder [Recovered/Resolved]
  - Irritability [Recovered/Resolved]
  - Delirium [Recovered/Resolved]
  - Aggression [Recovered/Resolved]
  - Anxiety [Recovered/Resolved]
